FAERS Safety Report 23146610 (Version 1)
Quarter: 2023Q4

REPORT INFORMATION
  Report Type: Spontaneous
  Country: US (occurrence: US)
  Receive Date: 20231105
  Receipt Date: 20231105
  Transmission Date: 20240110
  Serious: Yes (Hospitalization, Other)
  Sender: FDA-Public Use
  Company Number: US-EPICPHARMA-US-2023EPCLIT01688

PATIENT
  Age: 8 Year
  Sex: Male

DRUGS (13)
  1. CARBOPLATIN [Suspect]
     Active Substance: CARBOPLATIN
     Indication: Malignant central nervous system neoplasm
     Dosage: ONE CYCLE
     Route: 065
  2. IFOSFAMIDE [Suspect]
     Active Substance: IFOSFAMIDE
     Indication: Malignant central nervous system neoplasm
     Dosage: ONE CYCLE
     Route: 065
  3. ETOPOSIDE [Suspect]
     Active Substance: ETOPOSIDE
     Indication: Malignant central nervous system neoplasm
     Dosage: ONE CYCLE
     Route: 065
  4. VINCRISTINE [Suspect]
     Active Substance: VINCRISTINE
     Indication: Malignant central nervous system neoplasm
     Route: 065
  5. CISPLATIN [Suspect]
     Active Substance: CISPLATIN
     Indication: Malignant central nervous system neoplasm
     Route: 065
  6. MANNITOL [Suspect]
     Active Substance: MANNITOL
     Indication: Malignant central nervous system neoplasm
     Route: 065
  7. CYCLOPHOSPHAMIDE [Suspect]
     Active Substance: CYCLOPHOSPHAMIDE
     Indication: Malignant central nervous system neoplasm
     Route: 065
  8. MESNA [Suspect]
     Active Substance: MESNA
     Indication: Malignant central nervous system neoplasm
     Route: 065
  9. METHOTREXATE [Suspect]
     Active Substance: METHOTREXATE
     Indication: Malignant central nervous system neoplasm
     Route: 065
  10. LEUCOVORIN [Suspect]
     Active Substance: LEUCOVORIN\LEUCOVORIN CALCIUM
     Indication: Malignant central nervous system neoplasm
     Route: 065
  11. THIOTEPA [Suspect]
     Active Substance: THIOTEPA
     Indication: Malignant central nervous system neoplasm
     Route: 065
  12. PROMETHAZINE [Concomitant]
     Active Substance: PROMETHAZINE HYDROCHLORIDE
     Indication: Product used for unknown indication
     Route: 065
  13. HYDROXYZINE [Concomitant]
     Active Substance: HYDROXYZINE HYDROCHLORIDE
     Indication: Product used for unknown indication
     Route: 065

REACTIONS (6)
  - Engraftment syndrome [Unknown]
  - Clostridium difficile colitis [Unknown]
  - Dehydration [Unknown]
  - Feeding disorder [Recovered/Resolved]
  - Blood electrolytes decreased [Unknown]
  - Product use in unapproved indication [Unknown]
